FAERS Safety Report 17481325 (Version 2)
Quarter: 2022Q1

REPORT INFORMATION
  Report Type: Spontaneous
  Country: DE (occurrence: DE)
  Receive Date: 20200302
  Receipt Date: 20220224
  Transmission Date: 20220423
  Serious: Yes (Other)
  Sender: FDA-Public Use
  Company Number: DE-MYLANLABS-2019M1081835

PATIENT
  Age: 54 Year
  Sex: Male
  Weight: 78 kg

DRUGS (25)
  1. VALSARTAN [Suspect]
     Active Substance: VALSARTAN
     Indication: Hypertension
     Dosage: UNK
     Route: 065
  2. VALSARTAN [Suspect]
     Active Substance: VALSARTAN
     Indication: Hypertension
     Dosage: 160 MILLIGRAM, ONCE A DAY
     Route: 048
     Dates: start: 2015, end: 201807
  3. CANDESARTAN CILEXETIL [Suspect]
     Active Substance: CANDESARTAN CILEXETIL
     Indication: Product used for unknown indication
     Dosage: UNK
     Route: 065
  4. VALSARTAN [Suspect]
     Active Substance: VALSARTAN
     Indication: Product used for unknown indication
     Dosage: UNK
     Route: 065
  5. CANDESARTAN CILEXETIL [Suspect]
     Active Substance: CANDESARTAN CILEXETIL
     Indication: Product used for unknown indication
     Dosage: UNK
     Route: 065
  6. Nepresol [Concomitant]
     Indication: Product used for unknown indication
     Dosage: UNK (2 EVENING)
     Route: 065
  7. DOXAZOSIN [Concomitant]
     Active Substance: DOXAZOSIN MESYLATE
     Indication: Product used for unknown indication
     Dosage: UNK (2 EVENING)
     Route: 065
  8. PREDNISONE [Concomitant]
     Active Substance: PREDNISONE
     Indication: Product used for unknown indication
     Dosage: UNK (1 AT MORNING)
     Route: 065
  9. ASPIRIN [Concomitant]
     Active Substance: ASPIRIN
     Indication: Product used for unknown indication
     Dosage: UNK (1 AT MORNING)
     Route: 065
  10. RENVELA [Concomitant]
     Active Substance: SEVELAMER CARBONATE
     Indication: Product used for unknown indication
     Dosage: UNK
     Route: 065
  11. PRAVASTATIN 1A PHARMA GMBH [Concomitant]
     Indication: Product used for unknown indication
     Dosage: UNK (1 EVENING)
     Route: 065
  12. METOPROLOL SUCCINATE [Concomitant]
     Active Substance: METOPROLOL SUCCINATE
     Indication: Product used for unknown indication
     Dosage: UNK (1 EVENING)
     Route: 065
  13. CALCITRIOL [Concomitant]
     Active Substance: CALCITRIOL
     Indication: Product used for unknown indication
     Dosage: UNK (2 IN MORNING)
     Route: 065
  14. SODIUM BICARBONATE [Concomitant]
     Active Substance: SODIUM BICARBONATE
     Indication: Product used for unknown indication
     Dosage: UNK (2-0-2 SATURDAY AND SUNDAY)
     Route: 065
  15. RENVELA [Concomitant]
     Active Substance: SEVELAMER CARBONATE
     Indication: Product used for unknown indication
     Dosage: UNK (2 IN MORNING)
     Route: 065
  16. DREISAVIT N [Concomitant]
     Indication: Product used for unknown indication
     Dosage: UNK (1 EVENING)
     Route: 065
  17. METAMIZOLE SODIUM [Concomitant]
     Active Substance: METAMIZOLE SODIUM
     Indication: Product used for unknown indication
     Dosage: UNK, PRN
     Route: 065
  18. RETACRIT [Concomitant]
     Active Substance: EPOETIN ALFA-EPBX
     Indication: Product used for unknown indication
     Dosage: UNK MONDAY AND FRIDAY, INTRAVENOUS
     Route: 065
  19. MELPERONE [Concomitant]
     Active Substance: MELPERONE
     Indication: Product used for unknown indication
     Dosage: UNK (1 NIGHT (FROM GP))
     Route: 065
  20. PANTOPRAZOL MICRO [Concomitant]
     Indication: Product used for unknown indication
     Dosage: UNK (1 MORNING 1 EVENING)
     Route: 065
  21. CHOLECALCIFEROL [Concomitant]
     Active Substance: CHOLECALCIFEROL
     Indication: Product used for unknown indication
     Dosage: UNK
     Route: 065
  22. AMLODIPIN ABZ [Concomitant]
     Indication: Product used for unknown indication
     Dosage: UNK (1 AT NOON)
     Route: 065
  23. CPS [Concomitant]
     Indication: Product used for unknown indication
     Dosage: UNK (UP TO 8 SACHETS PER DAY TO THE MEAL)
     Route: 065
  24. CANDESARTAN CILEXETIL [Concomitant]
     Active Substance: CANDESARTAN CILEXETIL
     Indication: Product used for unknown indication
     Dosage: UNK (1 EVENING)
     Route: 065
  25. SERTRALINE [Concomitant]
     Active Substance: SERTRALINE HYDROCHLORIDE
     Indication: Depression
     Dosage: UNK
     Route: 065

REACTIONS (9)
  - Mental impairment [Not Recovered/Not Resolved]
  - Anhedonia [Unknown]
  - Job dissatisfaction [Unknown]
  - Anxiety disorder [Unknown]
  - Decreased interest [Unknown]
  - Depression [Unknown]
  - Quality of life decreased [Not Recovered/Not Resolved]
  - Fear of disease [Not Recovered/Not Resolved]
  - Product contamination [Unknown]

NARRATIVE: CASE EVENT DATE: 20180101
